FAERS Safety Report 8306852-7 (Version None)
Quarter: 2012Q1

REPORT INFORMATION
  Report Type: 
  Country: None (occurrence: None)
  Receive Date: 20120327
  Receipt Date: 20091215
  Transmission Date: 20120608
  Serious: Yes (Other)
  Sender: FDA-Public Use
  Company Number: PHEH2008US07371

PATIENT
  Age: 54 Year
  Sex: Female

DRUGS (4)
  1. TRIAMTERENE (TRIAMTERENE) [Concomitant]
  2. AMBIEN [Concomitant]
  3. ZOLPIDEM [Concomitant]
  4. GLEEVEC [Suspect]
     Dosage: 400 MG, ORAL ; 300 MG ; 100 MG
     Route: 048
     Dates: start: 20010101

REACTIONS (13)
  - UNEVALUABLE EVENT [None]
  - RASH [None]
  - GLAUCOMA [None]
  - MYALGIA [None]
  - GINGIVITIS [None]
  - FLUID RETENTION [None]
  - OPTIC NERVE INJURY [None]
  - CONVULSION [None]
  - NAUSEA [None]
  - BONE PAIN [None]
  - MUSCLE SPASMS [None]
  - FATIGUE [None]
  - VISUAL ACUITY REDUCED [None]
